FAERS Safety Report 16414765 (Version 2)
Quarter: 2019Q3

REPORT INFORMATION
  Report Type: Spontaneous
  Country: US (occurrence: US)
  Receive Date: 20190611
  Receipt Date: 20190703
  Transmission Date: 20191004
  Serious: No
  Sender: FDA-Public Use
  Company Number: US-PFIZER INC-2019247868

PATIENT
  Age: 50 Year
  Sex: Male
  Weight: 126.53 kg

DRUGS (1)
  1. GENOTROPIN MQ [Suspect]
     Active Substance: SOMATROPIN
     Indication: GASTRIC DISORDER
     Dosage: 0.2 MG, ALTERNATE DAY (BEFORE BED; ONCE EVERY OTHER DAY)

REACTIONS (4)
  - Memory impairment [Unknown]
  - Off label use [Unknown]
  - Product dose omission [Unknown]
  - Product use in unapproved indication [Unknown]
